FAERS Safety Report 4864320-9 (Version None)
Quarter: 2005Q4

REPORT INFORMATION
  Report Type: 
  Country: None (occurrence: None)
  Receive Date: 20051222
  Receipt Date: 20030121
  Transmission Date: 20060501
  Serious: Yes (Hospitalization)
  Sender: FDA-Public Use
  Company Number: JP-MERCK-0301USA02775

PATIENT
  Age: 59 Year
  Sex: Female
  Weight: 42 kg

DRUGS (4)
  1. ZOCOR [Suspect]
     Indication: HYPERLIPIDAEMIA
     Route: 048
     Dates: start: 20020501, end: 20020920
  2. LOXOPROFEN SODIUM [Concomitant]
     Indication: RHEUMATOID ARTHRITIS
     Route: 065
  3. SULFASALAZINE [Concomitant]
     Route: 065
     Dates: start: 20020501
  4. CIMETIDINE [Concomitant]
     Route: 065

REACTIONS (3)
  - ANOREXIA [None]
  - DYSPNOEA [None]
  - EOSINOPHILIC PNEUMONIA ACUTE [None]
